FAERS Safety Report 17766731 (Version 1)
Quarter: 2020Q2

REPORT INFORMATION
  Report Type: Spontaneous
  Country: US (occurrence: US)
  Receive Date: 20200511
  Receipt Date: 20200511
  Transmission Date: 20200714
  Serious: No
  Sender: FDA-Public Use
  Company Number: US-GLAXOSMITHKLINE-US2020077681

PATIENT
  Sex: Male

DRUGS (3)
  1. FLONASE SENSIMIST ALLERGY RELIEF [Suspect]
     Active Substance: FLUTICASONE FUROATE
     Indication: HYPERSENSITIVITY
     Dosage: UNK
  2. CERAVE LOTION [Concomitant]
     Indication: THERAPEUTIC SKIN CARE TOPICAL
     Dosage: UNK
  3. PETROLEUM JELLY [Concomitant]
     Active Substance: PETROLATUM
     Indication: THERAPEUTIC SKIN CARE TOPICAL
     Dosage: UNK

REACTIONS (4)
  - Nasal dryness [Unknown]
  - Condition aggravated [Unknown]
  - Insomnia [Unknown]
  - Nasal congestion [Unknown]
